FAERS Safety Report 16834604 (Version 4)
Quarter: 2019Q4

REPORT INFORMATION
  Report Type: Spontaneous
  Country: EG (occurrence: EG)
  Receive Date: 20190920
  Receipt Date: 20191101
  Transmission Date: 20200122
  Serious: Yes (Other)
  Sender: FDA-Public Use
  Company Number: EG-NOVOPROD-684763

PATIENT
  Age: 62 Year
  Sex: Female
  Weight: 90 kg

DRUGS (6)
  1. MIXTARD 30 HM PENFILL [Suspect]
     Active Substance: INSULIN HUMAN
     Indication: DIABETES MELLITUS
     Dosage: 50 IU, QD (35 IU AM /15 IU PM) STARTED 3 YEARS AGO
     Route: 058
  2. MILGA [Concomitant]
     Dosage: 2 TABLETS AFTER LUNCH (20 YEARS AGO)
     Route: 065
  3. CONCOR 5 PLUS [Concomitant]
     Dosage: 1 TABLET BEFORE EATING AND IF PATIENT WENT OUT OF HOME 1 TABLET AT NIGHT (MORE THAN 30 YEARS AGO)
     Route: 065
  4. ASPOCID [Concomitant]
     Active Substance: ASPIRIN
     Dosage: 150 MG, QD (75 MG, 2 TABLETS AFTER LUNHC), STARTED 20 YEARS AGO
     Route: 065
  5. DELTAREN [DICLOFENAC RESINATE] [Concomitant]
     Dosage: 3 TIMES PER DAY (2 YEARS AGO)
     Route: 065
  6. NITROGLYCERIN. [Concomitant]
     Active Substance: NITROGLYCERIN
     Indication: CARDIAC DISORDER
     Dosage: 2 TABLETS AFTER LUNCH (7 YEARS AGO)
     Route: 065

REACTIONS (2)
  - Cataract [Not Recovered/Not Resolved]
  - Ocular hypertension [Unknown]

NARRATIVE: CASE EVENT DATE: 201904
